FAERS Safety Report 7937632-X (Version None)
Quarter: 2011Q4

REPORT INFORMATION
  Report Type: 
  Country: None (occurrence: None)
  Receive Date: 20111123
  Receipt Date: 20111109
  Transmission Date: 20120403
  Serious: Yes (Hospitalization)
  Sender: FDA-Public Use
  Company Number: PHHO2009FR15146

PATIENT
  Sex: Female
  Weight: 14.2 kg

DRUGS (1)
  1. ILARIS [Suspect]
     Indication: MUCKLE-WELLS SYNDROME
     Dosage: 28.4 MG / 8 WEEKS
     Route: 058
     Dates: start: 20090729

REACTIONS (5)
  - MUCKLE-WELLS SYNDROME [None]
  - CHRONIC TONSILLITIS [None]
  - TONSILLAR HYPERTROPHY [None]
  - TONSILLITIS STREPTOCOCCAL [None]
  - DISEASE PROGRESSION [None]
